FAERS Safety Report 4700067-7 (Version None)
Quarter: 2005Q2

REPORT INFORMATION
  Report Type: 
  Country: None (occurrence: None)
  Receive Date: 20050627
  Receipt Date: 20050620
  Transmission Date: 20051028
  Serious: Yes (Life-Threatening, Hospitalization)
  Sender: FDA-Public Use
  Company Number: GB-GLAXOSMITHKLINE-B0385054A

PATIENT
  Age: 60 Year
  Sex: Female
  Weight: 50.8 kg

DRUGS (2)
  1. LAMOTRIGINE [Suspect]
     Route: 065
  2. VENLAFAXINE HCL [Suspect]
     Route: 065

REACTIONS (1)
  - AORTIC STENOSIS [None]
